FAERS Safety Report 8203079-4 (Version None)
Quarter: 2012Q1

REPORT INFORMATION
  Report Type: 
  Country: None (occurrence: None)
  Receive Date: 20120312
  Receipt Date: 20120305
  Transmission Date: 20120608
  Serious: Yes (Other)
  Sender: FDA-Public Use
  Company Number: US-BAYER-2012-021419

PATIENT
  Age: 51 Year
  Sex: Male

DRUGS (10)
  1. TRAMADOL HCL [Concomitant]
  2. CLONAZEPAM [Concomitant]
     Indication: ANXIETY
  3. KLONOPIN [Suspect]
  4. DIVAN [Concomitant]
  5. ACETAMINOPHEN [Concomitant]
  6. LISINOPRIL [Concomitant]
     Indication: HYPERTENSION
  7. METOPROLOL SUCCINATE [Concomitant]
     Indication: HYPERTENSION
  8. BACLOFEN [Concomitant]
  9. BETASERON [Suspect]
     Indication: MULTIPLE SCLEROSIS
     Dosage: 2 MIU, QOD
     Route: 058
     Dates: start: 20120301, end: 20120305
  10. AMLODIPINE [Concomitant]
     Indication: HYPERTENSION

REACTIONS (12)
  - TREMOR [None]
  - INSOMNIA [None]
  - HYPERHIDROSIS [None]
  - ANXIETY [None]
  - BLOOD PRESSURE INCREASED [None]
  - NAUSEA [None]
  - INFLUENZA [None]
  - PANIC ATTACK [None]
  - COLD SWEAT [None]
  - ALCOHOLISM [None]
  - RETCHING [None]
  - PYREXIA [None]
